FAERS Safety Report 4408903-9 (Version None)
Quarter: 2004Q3

REPORT INFORMATION
  Report Type: 
  Country: None (occurrence: None)
  Receive Date: 20040727
  Receipt Date: 20040614
  Transmission Date: 20050211
  Serious: Yes (Other)
  Sender: FDA-Public Use
  Company Number: PHBS2004BR07756

PATIENT
  Age: 51 Year
  Sex: Male
  Weight: 160 kg

DRUGS (7)
  1. LEPONEX [Suspect]
     Indication: SCHIZOPHRENIA, PARANOID TYPE
     Dosage: 300 MG/D
     Route: 048
  2. LEPONEX [Suspect]
     Dosage: 500 MG/D
     Route: 048
     Dates: start: 20040721
  3. GEODON [Concomitant]
  4. FOLIC ACID [Concomitant]
     Route: 048
  5. VALPROIC ACID [Concomitant]
     Indication: SCHIZOPHRENIA
     Dosage: 2000 MG/D
     Route: 048
  6. EXELON [Concomitant]
     Indication: MEMORY IMPAIRMENT
     Dosage: 6 MG, BID
     Route: 048
  7. HALOPERIDOL [Concomitant]
     Route: 065

REACTIONS (5)
  - ARTHROPATHY [None]
  - HYPERTENSION [None]
  - THROMBOSIS [None]
  - VENOUS INSUFFICIENCY [None]
  - WEIGHT INCREASED [None]
